FAERS Safety Report 9387528 (Version 1)
Quarter: 2013Q3

REPORT INFORMATION
  Report Type: Spontaneous
  Country: US (occurrence: US)
  Receive Date: 20130708
  Receipt Date: 20130708
  Transmission Date: 20140515
  Serious: Yes (Other)
  Sender: FDA-Public Use
  Company Number: US-PFIZER INC-2013198960

PATIENT
  Age: 51 Year
  Sex: Female
  Weight: 66.21 kg

DRUGS (5)
  1. LYRICA [Suspect]
     Indication: FIBROMYALGIA
     Dosage: 60 MG, 2X/DAY
     Route: 048
     Dates: start: 201306, end: 20130702
  2. AVALIDE [Concomitant]
     Indication: HYPERTENSION
     Dosage: IRBESARTAN 300 MG/ HYDROCHLOROTHIAZIDE 12.5 MG, 1X/DAY
  3. NORVASC [Concomitant]
     Indication: HYPERTENSION
     Dosage: 10 MG, 1X/DAY IN EVENING
  4. SIMVASTATIN [Concomitant]
     Indication: BLOOD CHOLESTEROL INCREASED
     Dosage: 40 MG, 1X/DAY
  5. ACETYLSALICYLIC ACID [Concomitant]
     Indication: ANTICOAGULANT THERAPY
     Dosage: 81 MG, UNK

REACTIONS (3)
  - Hallucination, auditory [Not Recovered/Not Resolved]
  - Blister [Not Recovered/Not Resolved]
  - Dyspepsia [Not Recovered/Not Resolved]
